FAERS Safety Report 18195178 (Version 2)
Quarter: 2020Q3

REPORT INFORMATION
  Report Type: Other
  Country: CA (occurrence: CA)
  Receive Date: 20200825
  Receipt Date: 20200921
  Transmission Date: 20201103
  Serious: Yes (Hospitalization, Other)
  Sender: FDA-Public Use
  Company Number: CA-COVIS PHARMA B.V.-2020COV00384

PATIENT
  Age: 74 Year
  Sex: Male

DRUGS (11)
  1. OMNARIS [Suspect]
     Active Substance: CICLESONIDE
  2. ADVAIR HFA [Suspect]
     Active Substance: FLUTICASONE PROPIONATE\SALMETEROL XINAFOATE
  3. BREO ELLIPTA [Suspect]
     Active Substance: FLUTICASONE FUROATE\VILANTEROL TRIFENATATE
  4. OLODATEROL/TIOTROPIUM [Suspect]
     Active Substance: OLODATEROL HYDROCHLORIDE\TIOTROPIUM BROMIDE MONOHYDRATE
  5. PREDNISONE. [Suspect]
     Active Substance: PREDNISONE
  6. ATROVENT [Suspect]
     Active Substance: IPRATROPIUM BROMIDE
  7. ZENHALE [Suspect]
     Active Substance: FORMOTEROL FUMARATE\MOMETASONE FUROATE
  8. FLUTICASONE/VILANTEROL [Suspect]
     Active Substance: FLUTICASONE FUROATE\VILANTEROL TRIFENATATE
  9. BUDESONIDE/FORMOTEROL FUMARATE INHALATION AEROSOL [Suspect]
     Active Substance: BUDESONIDE\FORMOTEROL FUMARATE
     Dosage: 2 DOSAGE UNITS, 1X/DAY
  10. SPIRIVA [Suspect]
     Active Substance: TIOTROPIUM BROMIDE MONOHYDRATE
     Dosage: 1 DOSAGE UNITS, 1X/DAY
  11. FORMOTEROL FUMARATE INHALATION AEROSOL PEARL [Suspect]
     Active Substance: FORMOTEROL FUMARATE

REACTIONS (25)
  - Blood count abnormal [Not Recovered/Not Resolved]
  - Bronchiectasis [Not Recovered/Not Resolved]
  - Chest discomfort [Not Recovered/Not Resolved]
  - Osteopenia [Not Recovered/Not Resolved]
  - Emphysema [Not Recovered/Not Resolved]
  - Nasal obstruction [Not Recovered/Not Resolved]
  - Obstructive airways disorder [Not Recovered/Not Resolved]
  - Respiratory disorder [Not Recovered/Not Resolved]
  - Drug ineffective [Not Recovered/Not Resolved]
  - Nasal congestion [Not Recovered/Not Resolved]
  - Therapeutic product effect incomplete [Not Recovered/Not Resolved]
  - Asthma-chronic obstructive pulmonary disease overlap syndrome [Not Recovered/Not Resolved]
  - Dyspnoea [Not Recovered/Not Resolved]
  - Mycobacterium avium complex infection [Not Recovered/Not Resolved]
  - Pulmonary function test decreased [Not Recovered/Not Resolved]
  - Lung consolidation [Not Recovered/Not Resolved]
  - Pulmonary mass [Not Recovered/Not Resolved]
  - Throat irritation [Not Recovered/Not Resolved]
  - Asthma [Not Recovered/Not Resolved]
  - Oedema [Not Recovered/Not Resolved]
  - Wheezing [Not Recovered/Not Resolved]
  - Cough [Not Recovered/Not Resolved]
  - Pneumonia [Not Recovered/Not Resolved]
  - Sinus pain [Not Recovered/Not Resolved]
  - Sputum discoloured [Not Recovered/Not Resolved]
